FAERS Safety Report 4849863-6 (Version None)
Quarter: 2005Q4

REPORT INFORMATION
  Report Type: 
  Country: None (occurrence: None)
  Receive Date: 20051209
  Receipt Date: 20051205
  Transmission Date: 20060501
  Serious: Yes (Death, Hospitalization)
  Sender: FDA-Public Use
  Company Number: FR-MERCK-0512FRA00010

PATIENT
  Age: 83 Year
  Sex: Female
  Weight: 90 kg

DRUGS (5)
  1. FUROSEMIDE [Suspect]
     Route: 041
     Dates: start: 20050915, end: 20050920
  2. CIPROFLOXACIN HYDROCHLORIDE [Suspect]
     Indication: PNEUMONIA ASPIRATION
     Route: 041
     Dates: start: 20050905, end: 20050915
  3. PRIMAXIN [Suspect]
     Indication: PNEUMONIA ASPIRATION
     Route: 041
     Dates: start: 20050905, end: 20050915
  4. ESOMEPRAZOLE MAGNESIUM [Suspect]
     Route: 041
     Dates: start: 20050819, end: 20050920
  5. NEFOPAM HYDROCHLORIDE [Suspect]
     Route: 042
     Dates: start: 20050913, end: 20050920

REACTIONS (3)
  - LEUKOPENIA [None]
  - NEUTROPENIA [None]
  - SEPTIC SHOCK [None]
